FAERS Safety Report 21684331 (Version 1)
Quarter: 2022Q4

REPORT INFORMATION
  Report Type: Spontaneous
  Country: US (occurrence: None)
  Receive Date: 20221203
  Receipt Date: 20221203
  Transmission Date: 20230112
  Serious: Yes (Hospitalization)
  Sender: FDA-Public Use
  Company Number: None

PATIENT
  Sex: Female

DRUGS (18)
  1. ANASTROZOLE [Suspect]
     Active Substance: ANASTROZOLE
     Route: 048
     Dates: start: 20180814
  2. ACYCLOVIR TAB [Concomitant]
  3. ASPIRIN CHW [Concomitant]
  4. B COMPLEX [Concomitant]
  5. COQ-10 CAP [Concomitant]
  6. CRUSH VIT C LOZ [Concomitant]
  7. ENZYME DIGES CAP [Concomitant]
  8. ESTRACE TAB [Concomitant]
  9. FISH OIL CAP [Concomitant]
  10. LIVALO TAB [Concomitant]
  11. METOPROL TAR TAB [Concomitant]
  12. OMEGA 3 CAP [Concomitant]
  13. PRALUENT INJ [Concomitant]
  14. REPATHA [Concomitant]
     Active Substance: EVOLOCUMAB
  15. REPATHA SURE INJ [Concomitant]
  16. TAPAZOLE TAB [Concomitant]
  17. VITAMIN D3 CAP [Concomitant]
  18. ZETIA TAB [Concomitant]

REACTIONS (1)
  - Hospitalisation [None]

NARRATIVE: CASE EVENT DATE: 20221101
